FAERS Safety Report 4654628-4 (Version None)
Quarter: 2005Q2

REPORT INFORMATION
  Report Type: 
  Country: None (occurrence: None)
  Receive Date: 20050404
  Receipt Date: 20041203
  Transmission Date: 20051028
  Serious: No
  Sender: FDA-Public Use
  Company Number: USA041285285

PATIENT
  Age: 60 Year
  Sex: Female
  Weight: 69 kg

DRUGS (4)
  1. CYMBALTA [Suspect]
     Indication: DEPRESSION
     Dosage: 60 MG DAY
  2. ULTRAM [Concomitant]
  3. ATACAND HCT [Concomitant]
  4. TYLENOL (CAPLET) [Concomitant]

REACTIONS (7)
  - DRY MOUTH [None]
  - DYSGEUSIA [None]
  - FEELING ABNORMAL [None]
  - GLOSSODYNIA [None]
  - INSOMNIA [None]
  - LIP BLISTER [None]
  - SWOLLEN TONGUE [None]
